FAERS Safety Report 7936230-1 (Version None)
Quarter: 2011Q4

REPORT INFORMATION
  Report Type: 
  Country: None (occurrence: None)
  Receive Date: 20111123
  Receipt Date: 20111117
  Transmission Date: 20120403
  Serious: Yes (Other)
  Sender: FDA-Public Use
  Company Number: US-PFIZER INC-2011266926

PATIENT
  Sex: Male

DRUGS (5)
  1. VIAGRA [Suspect]
     Indication: ERECTILE DYSFUNCTION
     Dosage: 50 MG, 1X/DAY
     Route: 048
     Dates: start: 20090119
  2. VICODIN [Concomitant]
     Indication: PAIN
     Dosage: 5/500, 3X/DAY (TID)
  3. TOLMETIN SODIUM [Suspect]
     Dosage: 600 MG, 2X/DAY (BID)
  4. GLYBURIDE [Concomitant]
     Indication: TYPE 2 DIABETES MELLITUS
     Dosage: 500 MG, 2X/DAY (BID)
  5. ACTOS [Concomitant]
     Dosage: UNK

REACTIONS (1)
  - RECTAL HAEMORRHAGE [None]
